FAERS Safety Report 6052798-7 (Version None)
Quarter: 2009Q1

REPORT INFORMATION
  Report Type: 
  Country: None (occurrence: None)
  Receive Date: 20090127
  Receipt Date: 20090120
  Transmission Date: 20090719
  Serious: Yes (Death)
  Sender: FDA-Public Use
  Company Number: DE-AVENTIS-200813211DE

PATIENT
  Age: 79 Year
  Sex: Male
  Weight: 95 kg

DRUGS (4)
  1. TAXOTERE [Suspect]
     Route: 041
     Dates: start: 20081006, end: 20081124
  2. BUDENOFALK [Concomitant]
     Dosage: DOSE: NOT REPORTED
     Route: 048
     Dates: start: 20081110
  3. VOLTAREN [Concomitant]
     Indication: BONE PAIN
     Route: 048
  4. BUPRENORPHINE HCL [Concomitant]
     Indication: BONE PAIN
     Dates: start: 20080901

REACTIONS (4)
  - ALVEOLITIS [None]
  - INTERSTITIAL LUNG DISEASE [None]
  - RESPIRATORY FAILURE [None]
  - RESPIRATORY TRACT INFECTION [None]
